FAERS Safety Report 20545851 (Version 1)
Quarter: 2022Q1

REPORT INFORMATION
  Report Type: Spontaneous
  Country: US (occurrence: US)
  Receive Date: 20220303
  Receipt Date: 20220303
  Transmission Date: 20220424
  Serious: No
  Sender: FDA-Public Use
  Company Number: US-ALLERGAN-2143861US

PATIENT
  Sex: Female

DRUGS (1)
  1. RESTASIS [Suspect]
     Active Substance: CYCLOSPORINE
     Indication: Dry eye
     Dosage: UNK
     Route: 047
     Dates: start: 2021

REACTIONS (5)
  - Eye infection viral [Recovered/Resolved]
  - Product dispensing error [Unknown]
  - Expired product administered [Unknown]
  - Eye pain [Unknown]
  - Eye irritation [Unknown]
